FAERS Safety Report 24688666 (Version 3)
Quarter: 2024Q4

REPORT INFORMATION
  Report Type: Spontaneous
  Country: US (occurrence: US)
  Receive Date: 20241203
  Receipt Date: 20241224
  Transmission Date: 20250114
  Serious: No
  Sender: ALEXION PHARMACEUTICALS
  Company Number: US-AstraZeneca-CH-00731957AP

PATIENT
  Age: 77 Year

DRUGS (8)
  1. BYDUREON BCISE [Suspect]
     Active Substance: EXENATIDE
     Indication: Product used for unknown indication
     Dosage: 2 MILLIGRAM, QW
     Route: 065
  2. BYDUREON BCISE [Suspect]
     Active Substance: EXENATIDE
     Dosage: 2 MILLIGRAM, QW
     Route: 065
  3. BYDUREON BCISE [Suspect]
     Active Substance: EXENATIDE
     Dosage: 2 MILLIGRAM, QW
     Route: 065
  4. BYDUREON BCISE [Suspect]
     Active Substance: EXENATIDE
     Dosage: 2 MILLIGRAM, QW
     Route: 065
  5. BYDUREON BCISE [Suspect]
     Active Substance: EXENATIDE
     Dosage: 2 MILLIGRAM, QW
     Route: 065
  6. BYDUREON BCISE [Suspect]
     Active Substance: EXENATIDE
     Dosage: 2 MILLIGRAM, QW
     Route: 065
  7. BYDUREON BCISE [Suspect]
     Active Substance: EXENATIDE
     Dosage: 2 MILLIGRAM, QW
     Route: 065
  8. BYDUREON BCISE [Suspect]
     Active Substance: EXENATIDE
     Dosage: 2 MILLIGRAM, QW
     Route: 065

REACTIONS (7)
  - Glycosylated haemoglobin decreased [Unknown]
  - Injection site pain [Unknown]
  - Incorrect dose administered by device [Unknown]
  - Product dose omission issue [Unknown]
  - Wrong technique in device usage process [Unknown]
  - Device delivery system issue [Unknown]
  - Needle issue [Unknown]
